FAERS Safety Report 17475581 (Version 1)
Quarter: 2020Q1

REPORT INFORMATION
  Report Type: Report from Study
  Country: BR (occurrence: BR)
  Receive Date: 20200228
  Receipt Date: 20200228
  Transmission Date: 20200409
  Serious: Yes (Hospitalization)
  Sender: FDA-Public Use
  Company Number: BR-JNJFOC-20190920481

PATIENT
  Age: 40 Year
  Sex: Female
  Weight: 61 kg

DRUGS (3)
  1. STELARA [Suspect]
     Active Substance: USTEKINUMAB
     Dosage: WEEK 4
     Route: 058
  2. STELARA [Suspect]
     Active Substance: USTEKINUMAB
     Dosage: WEEK 4
     Route: 058
  3. STELARA [Suspect]
     Active Substance: USTEKINUMAB
     Indication: PSORIASIS
     Dosage: WEEK 0
     Route: 058

REACTIONS (5)
  - Product use issue [Unknown]
  - Alopecia [Not Recovered/Not Resolved]
  - Hepatitis [Unknown]
  - Off label use [Unknown]
  - Dengue haemorrhagic fever [Unknown]

NARRATIVE: CASE EVENT DATE: 2019
